FAERS Safety Report 6664674-7 (Version None)
Quarter: 2010Q2

REPORT INFORMATION
  Report Type: 
  Country: None (occurrence: None)
  Receive Date: 20100401
  Receipt Date: 20100330
  Transmission Date: 20101027
  Serious: Yes (Death, Hospitalization, Other)
  Sender: FDA-Public Use
  Company Number: US-MERCK-0612USA01801

PATIENT
  Age: 82 Year
  Sex: Female
  Weight: 41 kg

DRUGS (3)
  1. FOSAMAX [Suspect]
     Indication: BONE DISORDER
     Route: 048
  2. FOSAMAX [Suspect]
     Route: 048
  3. [THERAPY UNSPECIFIED] [Concomitant]
     Route: 065

REACTIONS (6)
  - ANXIETY [None]
  - DEPRESSION [None]
  - OSTEONECROSIS [None]
  - PNEUMONIA [None]
  - RENAL FAILURE [None]
  - VASCULITIS [None]
